FAERS Safety Report 7842210-7 (Version None)
Quarter: 2011Q4

REPORT INFORMATION
  Report Type: 
  Country: None (occurrence: None)
  Receive Date: 20111025
  Receipt Date: 20111021
  Transmission Date: 20120403
  Serious: Yes (Death)
  Sender: FDA-Public Use
  Company Number: IL-SANOFI-AVENTIS-2011SA069978

PATIENT
  Sex: Male

DRUGS (12)
  1. TAXOTERE [Suspect]
     Route: 041
  2. TAXOTERE [Suspect]
     Route: 041
  3. TAXOTERE [Suspect]
     Route: 041
  4. PEGFILGRASTIM [Suspect]
     Indication: PROPHYLAXIS
     Route: 065
  5. CARBOPLATIN [Suspect]
     Route: 065
  6. CARBOPLATIN [Suspect]
     Route: 065
  7. CARBOPLATIN [Suspect]
     Route: 065
  8. PEGFILGRASTIM [Suspect]
     Route: 065
  9. FLUOROURACIL [Suspect]
     Route: 065
  10. PEGFILGRASTIM [Suspect]
     Route: 065
  11. FLUOROURACIL [Suspect]
     Route: 065
  12. FLUOROURACIL [Suspect]
     Route: 065

REACTIONS (3)
  - NEUTROPENIA [None]
  - DRUG INEFFECTIVE [None]
  - FEBRILE NEUTROPENIA [None]
